FAERS Safety Report 9456875 (Version 1)
Quarter: 2013Q3

REPORT INFORMATION
  Report Type: Spontaneous
  Country: US (occurrence: US)
  Receive Date: 20130813
  Receipt Date: 20130813
  Transmission Date: 20140515
  Serious: Yes (Other)
  Sender: FDA-Public Use
  Company Number: US-WATSON-2013-14192

PATIENT
  Age: 32 Year
  Sex: Female
  Weight: 67 kg

DRUGS (14)
  1. BUPROPION HYDROCHLORIDE XL (WATSON LABORATORIES) [Suspect]
     Indication: PRODUCT USED FOR UNKNOWN INDICATION
     Dosage: 300 MG DAILY
     Route: 048
     Dates: start: 201304
  2. REBIF [Suspect]
     Indication: MULTIPLE SCLEROSIS
     Dosage: 44 MCG, THREE IN ONE WEEK
     Route: 058
     Dates: start: 20130225
  3. TRAMADOL [Suspect]
     Indication: PRODUCT USED FOR UNKNOWN INDICATION
     Dosage: UNK
     Route: 065
  4. OXYMORPHONE [Suspect]
     Indication: PAIN
     Dosage: 10 MG AS NEEDED
     Route: 048
  5. LAMICTAL [Concomitant]
     Indication: PRODUCT USED FOR UNKNOWN INDICATION
     Dosage: 25 MG
     Route: 048
  6. LYRICA [Concomitant]
     Indication: NEURALGIA
     Dosage: 150 MG, TWO CAPS
     Route: 048
  7. CITALOPRAM [Concomitant]
     Indication: PRODUCT USED FOR UNKNOWN INDICATION
     Dosage: 40MG EVERY MORNING
     Route: 048
  8. VARENICLINE [Concomitant]
     Indication: PRODUCT USED FOR UNKNOWN INDICATION
     Dosage: 1 MG, 2 IN 1 D
     Route: 048
  9. ALPRAZOLAM [Concomitant]
     Indication: ANXIETY
     Dosage: 0.25 MG, AS NEEDED
     Route: 048
  10. LUNESTA [Concomitant]
     Indication: SLEEP DISORDER
     Dosage: 3 MG, AT BEDTIME
     Route: 048
  11. ROBAXIN [Concomitant]
     Indication: PRODUCT USED FOR UNKNOWN INDICATION
     Dosage: 750 MG, 3 IN 1 D
     Route: 048
  12. TIZANIDINE [Concomitant]
     Indication: PRODUCT USED FOR UNKNOWN INDICATION
     Dosage: 8 MG, AT HOUR OF SLEEP
     Route: 048
  13. VALIUM                             /00017001/ [Concomitant]
     Indication: MUSCLE SPASMS
     Dosage: 10 MG AT BEDTIME
     Route: 048
  14. REQUIP [Concomitant]
     Indication: PRODUCT USED FOR UNKNOWN INDICATION
     Dosage: 2 MG, 1 HOUR BEFORE BEDTIME
     Route: 048

REACTIONS (2)
  - Convulsion [Unknown]
  - Adverse drug reaction [Unknown]
